FAERS Safety Report 6822441-5 (Version None)
Quarter: 2010Q3

REPORT INFORMATION
  Report Type: 
  Country: None (occurrence: None)
  Receive Date: 20100708
  Receipt Date: 20100629
  Transmission Date: 20110219
  Serious: Yes (Other)
  Sender: FDA-Public Use
  Company Number: US-SANOFI-AVENTIS-A03200702396

PATIENT
  Age: 58 Year
  Sex: Female
  Weight: 61.24 kg

DRUGS (10)
  1. AMBIEN [Suspect]
     Dosage: DOSE TEXT: TOOK 20 MG BUT SHORTLY LATER GOT UP AND TOOK ANOTHER 10 MG
     Route: 048
     Dates: start: 20060301
  2. HYDROCODONE BITARTRATE [Suspect]
     Route: 065
  3. PROPOXYPHENE [Suspect]
     Route: 065
  4. FLURAZEPAM [Suspect]
     Route: 065
  5. ALCOHOL [Suspect]
     Route: 065
  6. TRAZODONE HYDROCHLORIDE [Suspect]
     Route: 065
  7. LASIX [Concomitant]
  8. TYLENOL PM [Concomitant]
     Dosage: HAD TAKEN 1-2 AT 7 TO 8 PM ON 11-SEP-2006
  9. SYNTHROID [Concomitant]
     Indication: THYROID DISORDER
  10. PROTONIX [Concomitant]

REACTIONS (7)
  - HALLUCINATION, VISUAL [None]
  - IMPAIRED DRIVING ABILITY [None]
  - OVERDOSE [None]
  - PIRIFORMIS SYNDROME [None]
  - SLEEP TALKING [None]
  - SOMNAMBULISM [None]
  - TRANSIENT GLOBAL AMNESIA [None]
